FAERS Safety Report 11700377 (Version 2)
Quarter: 2015Q4

REPORT INFORMATION
  Report Type: Report from Study
  Country: DE (occurrence: DE)
  Receive Date: 20151105
  Receipt Date: 20151111
  Transmission Date: 20160304
  Serious: Yes (Life-Threatening, Hospitalization, Disabling)
  Sender: FDA-Public Use
  Company Number: DE-AMGEN-DEUNI2015115637

PATIENT
  Age: 24 Year
  Sex: Female

DRUGS (5)
  1. ETANERCEPT [Suspect]
     Active Substance: ETANERCEPT
     Indication: RHEUMATOID ARTHRITIS
     Dosage: 25 MG, 2X/WEEK
     Route: 065
     Dates: start: 20021227
  2. ETANERCEPT [Suspect]
     Active Substance: ETANERCEPT
     Dosage: 25 MG, EVERY 6 DAYS
     Route: 065
     Dates: start: 20140121
  3. ETANERCEPT [Suspect]
     Active Substance: ETANERCEPT
     Dosage: 25 MG, WEEKLY
     Route: 065
     Dates: start: 20130305
  4. ETANERCEPT [Suspect]
     Active Substance: ETANERCEPT
     Dosage: 25 MG, EVERY 3.5 DAYS
     Route: 065
     Dates: start: 20151026
  5. ETANERCEPT [Suspect]
     Active Substance: ETANERCEPT
     Dosage: 25 MG, EVERY 3.5 DAYS
     Route: 065
     Dates: start: 20111115

REACTIONS (1)
  - Ovarian cancer stage I [Recovered/Resolved with Sequelae]

NARRATIVE: CASE EVENT DATE: 20151009
